FAERS Safety Report 13532009 (Version 2)
Quarter: 2017Q3

REPORT INFORMATION
  Report Type: Spontaneous
  Country: US (occurrence: FR)
  Receive Date: 20170510
  Receipt Date: 20170818
  Transmission Date: 20171127
  Serious: Yes (Other)
  Sender: FDA-Public Use
  Company Number: US-SUNOVION-2017SUN001903

PATIENT

DRUGS (11)
  1. IMOVANE [Concomitant]
     Active Substance: ZOPICLONE
  2. ESIDREX [Concomitant]
     Active Substance: HYDROCHLOROTHIAZIDE
  3. METFORMINE [Concomitant]
     Active Substance: METFORMIN HYDROCHLORIDE
  4. REPAGLINIDE. [Concomitant]
     Active Substance: REPAGLINIDE
  5. INDACATEROL AND GLYCOPYRROLATE [Suspect]
     Active Substance: GLYCOPYRROLATE\INDACATEROL MALEATE
     Indication: CHRONIC OBSTRUCTIVE PULMONARY DISEASE
     Dosage: 1 DF, QD
     Route: 055
     Dates: start: 20160112, end: 20160313
  6. LYRICA [Concomitant]
     Active Substance: PREGABALIN
  7. AMLOR [Concomitant]
     Active Substance: AMLODIPINE BESYLATE
  8. RAMIPRIL. [Concomitant]
     Active Substance: RAMIPRIL
  9. NEXIUM [Concomitant]
     Active Substance: ESOMEPRAZOLE MAGNESIUM
  10. TAHOR [Concomitant]
     Active Substance: ATORVASTATIN CALCIUM
  11. PLAVIX [Concomitant]
     Active Substance: CLOPIDOGREL BISULFATE

REACTIONS (1)
  - Haemoptysis [Recovered/Resolved]

NARRATIVE: CASE EVENT DATE: 20160210
